FAERS Safety Report 25941387 (Version 5)
Quarter: 2025Q4

REPORT INFORMATION
  Report Type: Report from Study
  Country: CA (occurrence: CA)
  Receive Date: 20251020
  Receipt Date: 20251218
  Transmission Date: 20260118
  Serious: Yes (Other)
  Sender: PFIZER
  Company Number: CA-PFIZER INC-202500196417

PATIENT
  Age: 51 Year
  Sex: Female

DRUGS (2)
  1. IXIFI [Suspect]
     Active Substance: INFLIXIMAB-QBTX
     Indication: Psoriatic arthropathy
     Dosage: 400 MG, EVERY 6 WEEKS
     Route: 042
     Dates: start: 20250603
  2. IXIFI [Suspect]
     Active Substance: INFLIXIMAB-QBTX
     Dosage: 400 MG, EVERY 6 WEEKS
     Route: 042
     Dates: start: 20250828, end: 20250828

REACTIONS (5)
  - Cholecystectomy [Unknown]
  - Productive cough [Unknown]
  - Body temperature increased [Unknown]
  - Dyspnoea exertional [Unknown]
  - Tooth abscess [Recovering/Resolving]

NARRATIVE: CASE EVENT DATE: 20250101
